FAERS Safety Report 5028355-8 (Version None)
Quarter: 2006Q2

REPORT INFORMATION
  Report Type: 
  Country: None (occurrence: None)
  Receive Date: 20060503
  Receipt Date: 20060222
  Transmission Date: 20061013
  Serious: No
  Sender: FDA-Public Use
  Company Number: FACT0600099

PATIENT
  Age: 35 Year
  Sex: Male
  Weight: 99.8 kg

DRUGS (3)
  1. FACTIVE [Suspect]
     Indication: RESPIRATORY TRACT INFECTION BACTERIAL
     Dates: start: 20060207, end: 20060211
  2. ENTEX PSE (GUAIFENESIN, PSEUDOEPHEDRINE HYDROCHLORIDE) [Suspect]
     Indication: SINUSITIS
     Dosage: 600
     Dates: start: 20060207, end: 20060219
  3. AFRIN NASAL SPRAY (OXYMETAZOLINE HYDROCHLORIDE) [Suspect]
     Indication: SINUSITIS
     Dates: start: 20060207, end: 20060209

REACTIONS (1)
  - RASH GENERALISED [None]
